FAERS Safety Report 7281780-7 (Version None)
Quarter: 2011Q1

REPORT INFORMATION
  Report Type: 
  Country: None (occurrence: None)
  Receive Date: 20110208
  Receipt Date: 20100406
  Transmission Date: 20110831
  Serious: No
  Sender: FDA-Public Use
  Company Number: US-PFIZER INC-2010044193

PATIENT
  Sex: Female
  Weight: 78.005 kg

DRUGS (2)
  1. SUTENT [Suspect]
     Indication: HAEMANGIOMA
     Dosage: 12.5 MG, 1X/DAY, AT NIGHT
     Route: 048
     Dates: start: 20091201
  2. METOPROLOL [Concomitant]
     Indication: HYPERTENSION
     Dosage: UNK

REACTIONS (1)
  - WEIGHT INCREASED [None]
